FAERS Safety Report 13898790 (Version 1)
Quarter: 2017Q3

REPORT INFORMATION
  Report Type: Spontaneous
  Country: US (occurrence: US)
  Receive Date: 20170823
  Receipt Date: 20170823
  Transmission Date: 20171127
  Serious: Yes (Other)
  Sender: FDA-Public Use
  Company Number: None

PATIENT
  Age: 55 Year
  Sex: Female
  Weight: 65.7 kg

DRUGS (11)
  1. VELTASSA [Suspect]
     Active Substance: PATIROMER
     Indication: HYPERKALAEMIA
     Route: 048
     Dates: start: 20170510, end: 20170531
  2. METOPROLOL. [Concomitant]
     Active Substance: METOPROLOL
  3. SENSIPAR [Concomitant]
     Active Substance: CINACALCET HYDROCHLORIDE
  4. LANTUS SOLOSTAR [Concomitant]
     Active Substance: INSULIN GLARGINE
  5. WARFARIN [Concomitant]
     Active Substance: WARFARIN
  6. LISINOPRIL. [Concomitant]
     Active Substance: LISINOPRIL
  7. ATORVASTATIN [Concomitant]
     Active Substance: ATORVASTATIN
  8. NIFEDIPINE. [Concomitant]
     Active Substance: NIFEDIPINE
  9. ASPIRIN. [Concomitant]
     Active Substance: ASPIRIN
  10. BUMETANIDE. [Concomitant]
     Active Substance: BUMETANIDE
  11. DEXAMETHASONE. [Concomitant]
     Active Substance: DEXAMETHASONE

REACTIONS (1)
  - Urticaria [None]

NARRATIVE: CASE EVENT DATE: 20170525
